FAERS Safety Report 8854128 (Version 1)
Quarter: 2012Q4

REPORT INFORMATION
  Report Type: 
  Country: US (occurrence: US)
  Receive Date: 20121022
  Receipt Date: 20121022
  Transmission Date: 20130627
  Serious: Yes (Other)
  Sender: FDA-Public Use
  Company Number: US-PFIZER INC-2012262338

PATIENT
  Age: 28 Year
  Sex: Female
  Weight: 73.02 kg

DRUGS (5)
  1. LYRICA [Suspect]
     Indication: PAIN
     Dosage: 100 mg (two capsules of 50mg), 2x/day
     Route: 048
     Dates: start: 201201, end: 20121018
  2. LYRICA [Suspect]
     Dosage: 100mg capsule two times a day
     Route: 048
     Dates: start: 20121018
  3. PROPRANOLOL [Concomitant]
     Dosage: 20 mg, 2x/day
  4. METHOCARBAMOL [Concomitant]
     Dosage: 750 mg, as needed
     Route: 048
  5. HYDROCODONE W/ACETAMINOPHEN [Concomitant]
     Dosage: 10/500 mg, UNK

REACTIONS (1)
  - Weight increased [Unknown]
